FAERS Safety Report 15200801 (Version 1)
Quarter: 2018Q3

REPORT INFORMATION
  Report Type: Spontaneous
  Country: IT (occurrence: IT)
  Receive Date: 20180726
  Receipt Date: 20180726
  Transmission Date: 20181010
  Serious: Yes (Other)
  Sender: FDA-Public Use
  Company Number: IT-TEVA-2018-IT-930759

PATIENT
  Age: 56 Year
  Sex: Female
  Weight: 44 kg

DRUGS (3)
  1. FLUOROURACIL. [Suspect]
     Active Substance: FLUOROURACIL
     Indication: GASTRIC CANCER STAGE IV
     Route: 042
     Dates: start: 20170622, end: 20180608
  2. LEVOLEUCOVORIN. [Concomitant]
     Active Substance: LEVOLEUCOVORIN
     Indication: GASTRIC CANCER STAGE IV
     Route: 042
     Dates: start: 20170622, end: 20180608
  3. FLUOROURACIL. [Suspect]
     Active Substance: FLUOROURACIL
     Route: 040
     Dates: start: 20170622, end: 20180608

REACTIONS (1)
  - Bronchitis bacterial [Recovering/Resolving]

NARRATIVE: CASE EVENT DATE: 20180420
